FAERS Safety Report 14576955 (Version 1)
Quarter: 2018Q1

REPORT INFORMATION
  Report Type: Spontaneous
  Country: US (occurrence: US)
  Receive Date: 20180225
  Receipt Date: 20180225
  Transmission Date: 20180509
  Serious: No
  Sender: FDA-Public Use
  Company Number: None

PATIENT
  Age: 54 Year
  Sex: Female
  Weight: 118.35 kg

DRUGS (14)
  1. LORATADINE. [Concomitant]
     Active Substance: LORATADINE
  2. VITAMIN E [Concomitant]
     Active Substance: .ALPHA.-TOCOPHEROL
  3. CHLORHEXIDINE GLUCONATE ORAL RINSE, USP [Suspect]
     Active Substance: CHLORHEXIDINE GLUCONATE
     Indication: GINGIVITIS
     Dosage: ?          QUANTITY:1 TABLESPOON(S);?
     Route: 048
  4. TYLENOL [Concomitant]
     Active Substance: ACETAMINOPHEN
  5. MELOXICAM. [Concomitant]
     Active Substance: MELOXICAM
  6. CALCIUM W/VIT D [Concomitant]
  7. MECLIZINE [Concomitant]
     Active Substance: MECLIZINE HYDROCHLORIDE
  8. BAYER [Concomitant]
     Active Substance: ASPIRIN
  9. EMERGEN-C [Concomitant]
     Active Substance: VITAMINS
  10. BENADRYL [Concomitant]
     Active Substance: DIPHENHYDRAMINE HYDROCHLORIDE
  11. FUROSEMIDE. [Concomitant]
     Active Substance: FUROSEMIDE
  12. DICLOFENAC [Concomitant]
     Active Substance: DICLOFENAC
  13. LISINOPRIL. [Concomitant]
     Active Substance: LISINOPRIL
  14. 50 PLUS MULTIPLE VITAMINS [Concomitant]

REACTIONS (2)
  - Haemoptysis [None]
  - Tongue discomfort [None]

NARRATIVE: CASE EVENT DATE: 20180221
